FAERS Safety Report 8074999-9 (Version None)
Quarter: 2012Q1

REPORT INFORMATION
  Report Type: 
  Country: None (occurrence: None)
  Receive Date: 20120127
  Receipt Date: 20120118
  Transmission Date: 20120608
  Serious: No
  Sender: FDA-Public Use
  Company Number: US-BIOGENIDEC-2011BI043492

PATIENT
  Sex: Female

DRUGS (7)
  1. PERCOCET [Concomitant]
     Indication: MUSCLE SPASMS
  2. AVONEX [Concomitant]
     Indication: MULTIPLE SCLEROSIS
     Route: 030
  3. PERCOCET [Concomitant]
     Indication: PAIN IN EXTREMITY
  4. XANAX [Concomitant]
     Indication: TENSION
  5. AVONEX [Concomitant]
     Route: 030
     Dates: start: 19971110
  6. XANAX [Concomitant]
     Indication: INSOMNIA
  7. TYSABRI [Suspect]
     Indication: MULTIPLE SCLEROSIS
     Route: 042
     Dates: start: 20061215

REACTIONS (21)
  - FATIGUE [None]
  - MEMORY IMPAIRMENT [None]
  - GAIT DISTURBANCE [None]
  - SLEEP DISORDER [None]
  - CONFUSIONAL STATE [None]
  - GENERAL SYMPTOM [None]
  - MENTAL IMPAIRMENT [None]
  - FACIAL PAIN [None]
  - HALLUCINATIONS, MIXED [None]
  - COGNITIVE DISORDER [None]
  - APATHY [None]
  - PAIN IN EXTREMITY [None]
  - ORAL PAIN [None]
  - PAIN [None]
  - CATARACT [None]
  - DYSGRAPHIA [None]
  - DEPRESSION [None]
  - TOOTH IMPACTED [None]
  - NERVOUS SYSTEM DISORDER [None]
  - DECREASED APPETITE [None]
  - MULTIPLE SCLEROSIS [None]
